FAERS Safety Report 12272068 (Version 1)
Quarter: 2016Q2

REPORT INFORMATION
  Report Type: Spontaneous
  Country: US (occurrence: US)
  Receive Date: 20160415
  Receipt Date: 20160415
  Transmission Date: 20160815
  Serious: No
  Sender: FDA-Public Use
  Company Number: US-FERRINGPH-2015FE03726

PATIENT
  Age: 82 Year
  Sex: Male
  Weight: 70.3 kg

DRUGS (6)
  1. LEVOTHYROXINE. [Concomitant]
     Active Substance: LEVOTHYROXINE
     Indication: THYROID DISORDER
     Dosage: 50 MG, DAILY
  2. METOPROLOL. [Concomitant]
     Active Substance: METOPROLOL
     Dosage: 100 MG, DAILY
  3. NISOLDIPINE. [Concomitant]
     Active Substance: NISOLDIPINE
     Dosage: 34 MG, DAILY
  4. LOSARTAN + HIDROCLOROTIAZIDA       /01284801/ [Concomitant]
     Indication: HYPERTENSION
     Dosage: 12.5 MG, DAILY
  5. MAGNESIUM [Concomitant]
     Active Substance: MAGNESIUM
     Dosage: 400 MG, DAILY
  6. FIRMAGON [Suspect]
     Active Substance: DEGARELIX ACETATE
     Indication: PROSTATE CANCER METASTATIC
     Dosage: 240 MG, EVERY 28 DAYS
     Dates: start: 20151013

REACTIONS (4)
  - Skin burning sensation [Not Recovered/Not Resolved]
  - Mass [Not Recovered/Not Resolved]
  - Swelling [Not Recovered/Not Resolved]
  - Hot flush [Not Recovered/Not Resolved]

NARRATIVE: CASE EVENT DATE: 20151014
